FAERS Safety Report 10186388 (Version 1)
Quarter: 2014Q2

REPORT INFORMATION
  Report Type: Spontaneous
  Country: US (occurrence: US)
  Receive Date: 20140521
  Receipt Date: 20140521
  Transmission Date: 20141212
  Serious: No
  Sender: FDA-Public Use
  Company Number: US-ASTRAZENECA-2013SE77676

PATIENT
  Age: 56 Year
  Sex: Female
  Weight: 93 kg

DRUGS (1)
  1. PULMICORT RESPULES [Suspect]
     Indication: ASTHMA
     Dosage: 0.5 MG/2ML
     Route: 055

REACTIONS (3)
  - Asthma [Unknown]
  - Dyspnoea [Unknown]
  - Off label use [Unknown]
